FAERS Safety Report 21763486 (Version 1)
Quarter: 2022Q4

REPORT INFORMATION
  Report Type: Spontaneous
  Country: US (occurrence: US)
  Receive Date: 20221221
  Receipt Date: 20221221
  Transmission Date: 20230112
  Serious: No
  Sender: FDA-Public Use
  Company Number: US-GSK-US2022187923

PATIENT
  Sex: Female
  Weight: 100.7 kg

DRUGS (1)
  1. BENLYSTA [Suspect]
     Active Substance: BELIMUMAB
     Indication: Systemic lupus erythematosus
     Dosage: UNK AFTER A FEW MONTHS

REACTIONS (2)
  - Rash [Recovered/Resolved]
  - Dry skin [Unknown]
